FAERS Safety Report 7166709-4 (Version None)
Quarter: 2010Q4

REPORT INFORMATION
  Report Type: 
  Country: None (occurrence: None)
  Receive Date: 20101213
  Receipt Date: 20101213
  Transmission Date: 20110411
  Serious: Yes (Hospitalization, Other)
  Sender: FDA-Public Use
  Company Number: None

PATIENT
  Age: 57 Year
  Sex: Male
  Weight: 158.759 kg

DRUGS (1)
  1. ZOCOR [Suspect]
     Indication: BLOOD TRIGLYCERIDES INCREASED
     Dosage: 40MG ONCE DAILY
     Dates: start: 20100401, end: 20101110

REACTIONS (19)
  - ANXIETY [None]
  - ARTHRALGIA [None]
  - ASTHENIA [None]
  - BALANCE DISORDER [None]
  - BLOOD GLUCOSE INCREASED [None]
  - BLOOD TRIGLYCERIDES INCREASED [None]
  - CHEST PAIN [None]
  - DEPRESSION [None]
  - DIABETES MELLITUS INADEQUATE CONTROL [None]
  - DIVERTICULITIS [None]
  - ENZYME ABNORMALITY [None]
  - FALL [None]
  - FATIGUE [None]
  - GAIT DISTURBANCE [None]
  - HEADACHE [None]
  - LOSS OF LIBIDO [None]
  - MUSCLE SPASMS [None]
  - MUSCULAR WEAKNESS [None]
  - RENAL IMPAIRMENT [None]
